FAERS Safety Report 22080912 (Version 1)
Quarter: 2023Q1

REPORT INFORMATION
  Report Type: Spontaneous
  Country: CA (occurrence: CA)
  Receive Date: 20230309
  Receipt Date: 20230309
  Transmission Date: 20230417
  Serious: Yes (Other)
  Sender: FDA-Public Use
  Company Number: CA-PFIZER INC-202201048882

PATIENT
  Age: 44 Year
  Sex: Male

DRUGS (2)
  1. RUXIENCE [Suspect]
     Active Substance: RITUXIMAB-PVVR
     Indication: Granulomatosis with polyangiitis
     Dosage: 1000 MG, DAY 1 AND 15 , IN HOSPITAL
     Route: 042
     Dates: start: 20230126, end: 20230303
  2. RUXIENCE [Suspect]
     Active Substance: RITUXIMAB-PVVR
     Indication: Microscopic polyangiitis
     Dosage: 1000 MG, 5 WEEKS AND 1 DAY
     Route: 042
     Dates: start: 20230303

REACTIONS (4)
  - Rectal haemorrhage [Unknown]
  - Inappropriate schedule of product administration [Unknown]
  - Hernia [Unknown]
  - Swelling [Unknown]

NARRATIVE: CASE EVENT DATE: 20230303
